FAERS Safety Report 23098052 (Version 1)
Quarter: 2023Q4

REPORT INFORMATION
  Report Type: Spontaneous
  Country: US (occurrence: None)
  Receive Date: 20231020
  Receipt Date: 20231020
  Transmission Date: 20240109
  Serious: Yes (Hospitalization)
  Sender: FDA-Public Use
  Company Number: None

PATIENT
  Age: 76 Year
  Sex: Male
  Weight: 86 kg

DRUGS (1)
  1. ATENOLOL [Suspect]
     Active Substance: ATENOLOL
     Dosage: FREQUENCY : DAILY;?
     Route: 048
     Dates: start: 20200706, end: 20230201

REACTIONS (2)
  - Bradycardia [None]
  - Syncope [None]

NARRATIVE: CASE EVENT DATE: 20230201
